FAERS Safety Report 13844988 (Version 2)
Quarter: 2017Q3

REPORT INFORMATION
  Report Type: Spontaneous
  Country: AR (occurrence: AR)
  Receive Date: 20170808
  Receipt Date: 20170906
  Transmission Date: 20171127
  Serious: Yes (Hospitalization, Other)
  Sender: FDA-Public Use
  Company Number: PHHY2017AR115587

PATIENT
  Age: 9 Year
  Sex: Male
  Weight: 39.5 kg

DRUGS (1)
  1. ILARIS [Suspect]
     Active Substance: CANAKINUMAB
     Indication: STILL^S DISEASE
     Dosage: 150 MG, EVERY 4 WEEKS
     Route: 065
     Dates: start: 201605, end: 20170620

REACTIONS (8)
  - Dermatitis exfoliative [Recovering/Resolving]
  - Pyrexia [Recovering/Resolving]
  - Splenomegaly [Recovering/Resolving]
  - Laboratory test abnormal [Recovering/Resolving]
  - Aspiration bone marrow abnormal [Unknown]
  - Histiocytosis haematophagic [Recovering/Resolving]
  - Infection [Recovered/Resolved]
  - Contusion [Recovering/Resolving]

NARRATIVE: CASE EVENT DATE: 20170726
